FAERS Safety Report 5984425-9 (Version None)
Quarter: 2008Q4

REPORT INFORMATION
  Report Type: 
  Country: None (occurrence: None)
  Receive Date: 20081208
  Receipt Date: 20080914
  Transmission Date: 20090506
  Serious: No
  Sender: FDA-Public Use
  Company Number: US-AMGEN-KDL307692

PATIENT
  Sex: Male

DRUGS (1)
  1. ENBREL [Suspect]
     Indication: PSORIATIC ARTHROPATHY
     Route: 058

REACTIONS (6)
  - BLISTER [None]
  - PRURITUS [None]
  - RASH [None]
  - SKIN EXFOLIATION [None]
  - SKIN HAEMORRHAGE [None]
  - WOUND SECRETION [None]
